FAERS Safety Report 10424610 (Version 1)
Quarter: 2014Q3

REPORT INFORMATION
  Report Type: Spontaneous
  Country: US (occurrence: US)
  Receive Date: 20140902
  Receipt Date: 20140902
  Transmission Date: 20150326
  Serious: Yes (Hospitalization, Other)
  Sender: FDA-Public Use
  Company Number: US-TARO-2014TAR00285

PATIENT
  Age: 70 Year
  Sex: Male
  Weight: 64.85 kg

DRUGS (8)
  1. WARFARIN SODIUM TABLETS USP 2MG [Suspect]
     Active Substance: WARFARIN SODIUM
     Indication: JUGULAR VEIN THROMBOSIS
     Dosage: 4 MG, 2X/WEEK
     Route: 048
     Dates: start: 201407, end: 201408
  2. WARFARIN SODIUM TABLETS USP 2MG [Suspect]
     Active Substance: WARFARIN SODIUM
     Dosage: 3 MG, 5X/WEEK
     Route: 048
     Dates: start: 201408
  3. THYROID MEDICATION (UNSPECIFIED) [Concomitant]
  4. INJECTION (UNSPECIFIED) [Concomitant]
     Indication: JUGULAR VEIN THROMBOSIS
  5. WARFARIN SODIUM TABLETS USP 2MG [Suspect]
     Active Substance: WARFARIN SODIUM
     Dosage: 3 MG, 5X/WEEK
     Route: 048
     Dates: start: 201407, end: 201408
  6. VITAMIN D3 [Concomitant]
     Active Substance: CHOLECALCIFEROL
  7. WARFARIN SODIUM TABLETS USP 2MG [Suspect]
     Active Substance: WARFARIN SODIUM
     Dosage: 4 MG, 2X/WEEK
     Route: 048
     Dates: start: 201408
  8. MAGNESIUM [Concomitant]
     Active Substance: MAGNESIUM

REACTIONS (4)
  - Liver disorder [Unknown]
  - International normalised ratio decreased [Unknown]
  - Drug ineffective [Unknown]
  - Gallbladder disorder [Unknown]

NARRATIVE: CASE EVENT DATE: 2014
